FAERS Safety Report 20183731 (Version 5)
Quarter: 2022Q1

REPORT INFORMATION
  Report Type: Report from Study
  Country: DK (occurrence: None)
  Receive Date: 20211214
  Receipt Date: 20220127
  Transmission Date: 20220423
  Serious: Yes (Hospitalization)
  Sender: FDA-Public Use
  Company Number: DK-ROCHE-2976322

PATIENT
  Age: 64 Year
  Sex: Female
  Weight: 87.9 kg

DRUGS (32)
  1. GLOFITAMAB [Suspect]
     Active Substance: GLOFITAMAB
     Indication: B-cell lymphoma
     Dosage: DOSE LAST GLOFITAMAB ADMINISTRATION PRIOR SERIOUS ADVERSE EVENT (SAE): 30 MG?START DATE OF MOST RECE
     Route: 042
     Dates: start: 20211014
  2. OBINUTUZUMAB [Suspect]
     Active Substance: OBINUTUZUMAB
     Indication: B-cell lymphoma
     Dosage: DOSE LAST OBINUTUZUMAB ADMINISTRATION PRIOR SERIOUS ADVERSE EVENT (SAE): 1000 MG?START DATE OF MOST
     Route: 042
     Dates: start: 20211007
  3. POLATUZUMAB VEDOTIN [Suspect]
     Active Substance: POLATUZUMAB VEDOTIN
     Indication: B-cell lymphoma
     Dosage: DOSE LAST POLATUZUMAB VEDOTIN ADMINISTRATION PRIOR SERIOUS ADVERSE EVENT (SAE): 174 MG?START DATE OF
     Route: 042
     Dates: start: 20211008
  4. METOCLOPRAMIDE [Concomitant]
     Active Substance: METOCLOPRAMIDE
     Indication: Nausea
     Dates: start: 20211019
  5. INSULIN NOS [Concomitant]
     Active Substance: INSULIN NOS
     Indication: Hyperglycaemia
     Dates: start: 20211022
  6. DEXAMETHASONE [Concomitant]
     Active Substance: DEXAMETHASONE
     Indication: Premedication
     Route: 042
     Dates: start: 20211104, end: 20211104
  7. DEXAMETHASONE [Concomitant]
     Active Substance: DEXAMETHASONE
     Route: 042
     Dates: start: 20211125, end: 20211125
  8. DEXAMETHASONE [Concomitant]
     Active Substance: DEXAMETHASONE
     Route: 042
     Dates: start: 20211216, end: 20211216
  9. CLEMASTINE [Concomitant]
     Active Substance: CLEMASTINE
     Indication: Premedication
     Route: 048
     Dates: start: 20211125, end: 20211125
  10. CLEMASTINE [Concomitant]
     Active Substance: CLEMASTINE
     Route: 048
     Dates: start: 20211104, end: 20211104
  11. CLEMASTINE [Concomitant]
     Active Substance: CLEMASTINE
     Route: 048
     Dates: start: 20211216, end: 20211216
  12. CLEMASTINE [Concomitant]
     Active Substance: CLEMASTINE
     Route: 048
     Dates: start: 20220106, end: 20220106
  13. METOPROLOL SUCCINATE [Concomitant]
     Active Substance: METOPROLOL SUCCINATE
     Indication: Prophylaxis
     Dates: start: 20170908
  14. ASPIRIN [Concomitant]
     Active Substance: ASPIRIN
     Indication: Anticoagulant therapy
     Dates: start: 20181101
  15. PANTOPRAZOLE [Concomitant]
     Active Substance: PANTOPRAZOLE
     Indication: Prophylaxis
  16. PANTOPRAZOLE [Concomitant]
     Active Substance: PANTOPRAZOLE
     Indication: Gastric ulcer
  17. ALLOPURINOL [Concomitant]
     Active Substance: ALLOPURINOL
     Indication: Prophylaxis
     Dates: start: 20211005
  18. SULFAMETHOXAZOLE\TRIMETHOPRIM [Concomitant]
     Active Substance: SULFAMETHOXAZOLE\TRIMETHOPRIM
     Indication: Prophylaxis
     Dates: start: 20211007
  19. NITROLINGUAL [Concomitant]
     Active Substance: NITROGLYCERIN
     Indication: Chest pain
     Dates: start: 20171109
  20. ACETAMINOPHEN [Concomitant]
     Active Substance: ACETAMINOPHEN
     Indication: Pain
     Dates: start: 20171120
  21. ACETAMINOPHEN [Concomitant]
     Active Substance: ACETAMINOPHEN
     Route: 048
     Dates: start: 20211216, end: 20211216
  22. ACETAMINOPHEN [Concomitant]
     Active Substance: ACETAMINOPHEN
     Route: 048
     Dates: start: 20211125, end: 20211125
  23. ACETAMINOPHEN [Concomitant]
     Active Substance: ACETAMINOPHEN
     Route: 048
     Dates: start: 20220106, end: 20220106
  24. UNIKALK SILVER [Concomitant]
     Indication: Mineral supplementation
     Dates: start: 20200828
  25. DALTEPARIN [Concomitant]
     Active Substance: DALTEPARIN
     Indication: Prophylaxis
     Dates: start: 20210908, end: 20211125
  26. ACYCLOVIR [Concomitant]
     Active Substance: ACYCLOVIR
     Indication: Prophylaxis
     Dates: start: 20211007
  27. PRADAXA [Concomitant]
     Active Substance: DABIGATRAN ETEXILATE MESYLATE
     Indication: Prophylaxis
     Dates: start: 20211125
  28. HYDROCORTISONE [Concomitant]
     Active Substance: HYDROCORTISONE
     Indication: Dry skin
     Dates: start: 20211118
  29. MOVICOL [Concomitant]
     Active Substance: POLYETHYLENE GLYCOL 3350\POTASSIUM CHLORIDE\SODIUM BICARBONATE\SODIUM CHLORIDE
     Indication: Constipation
     Dates: start: 20211104
  30. URSODIOL [Concomitant]
     Active Substance: URSODIOL
     Indication: Gamma-glutamyltransferase increased
     Dates: start: 20211209
  31. CODEINE [Concomitant]
     Active Substance: CODEINE
     Indication: Flank pain
     Dates: end: 20211229
  32. METOPROLOL SUCCINATE [Concomitant]
     Active Substance: METOPROLOL SUCCINATE
     Dates: start: 20170908

REACTIONS (4)
  - Dyspepsia [Recovering/Resolving]
  - Pyrexia [Recovered/Resolved]
  - Cytokine release syndrome [Recovered/Resolved]
  - Pyrexia [Recovered/Resolved]

NARRATIVE: CASE EVENT DATE: 20211106
